FAERS Safety Report 25597044 (Version 1)
Quarter: 2025Q3

REPORT INFORMATION
  Report Type: Spontaneous
  Country: US (occurrence: US)
  Receive Date: 20250723
  Receipt Date: 20250723
  Transmission Date: 20251021
  Serious: No
  Sender: NOBELPHARMA
  Company Number: US-NPA-2025-AER-01221

PATIENT
  Sex: Female

DRUGS (9)
  1. HYFTOR [Suspect]
     Active Substance: SIROLIMUS
     Indication: Benign neoplasm
     Route: 061
     Dates: start: 20230629
  2. AUGMENTIN [Concomitant]
     Active Substance: AMOXICILLIN\CLAVULANATE POTASSIUM
  3. BENADRYL [Concomitant]
     Active Substance: DIPHENHYDRAMINE HYDROCHLORIDE
  4. CORICIDIN HBP [Concomitant]
     Active Substance: ACETAMINOPHEN\CHLORPHENIRAMINE MALEATE
  5. LORATADINE [Concomitant]
     Active Substance: LORATADINE
  6. MIRALAX [Concomitant]
     Active Substance: POLYETHYLENE GLYCOL 3350
  7. MUCINEX [Concomitant]
     Active Substance: GUAIFENESIN
  8. MULTIPLE VIT [Concomitant]
  9. MULTIVITAMIN LIQ [Concomitant]

REACTIONS (2)
  - Ear infection [Unknown]
  - Off label use [Unknown]
